FAERS Safety Report 20360162 (Version 3)
Quarter: 2022Q2

REPORT INFORMATION
  Report Type: Spontaneous
  Country: CA (occurrence: CA)
  Receive Date: 20220121
  Receipt Date: 20220512
  Transmission Date: 20220721
  Serious: Yes (Death, Life-Threatening, Hospitalization, Other)
  Sender: FDA-Public Use
  Company Number: None

PATIENT
  Age: 50 Year
  Sex: Male

DRUGS (12)
  1. ALLOPURINOL [Suspect]
     Active Substance: ALLOPURINOL
     Indication: Product used for unknown indication
  2. AMLODIPINE [Suspect]
     Active Substance: AMLODIPINE BESYLATE
     Indication: Product used for unknown indication
  3. LISINOPRIL [Suspect]
     Active Substance: LISINOPRIL
     Indication: Product used for unknown indication
  4. TOLVAPTAN [Suspect]
     Active Substance: TOLVAPTAN
     Indication: Product used for unknown indication
  5. PRINIVIL [Suspect]
     Active Substance: LISINOPRIL
     Indication: Congenital cystic kidney disease
  6. VENLAFAXINE HYDROCHLORIDE [Suspect]
     Active Substance: VENLAFAXINE HYDROCHLORIDE
     Indication: Product used for unknown indication
  7. DIPHENHYDRAMINE [Suspect]
     Active Substance: DIPHENHYDRAMINE
     Indication: Angioedema
  8. EPINEPHRINE [Suspect]
     Active Substance: EPINEPHRINE
     Indication: Angioedema
  9. RANITIDINE [Suspect]
     Active Substance: RANITIDINE
     Indication: Angioedema
  10. ALLOPURINOL [Concomitant]
     Active Substance: ALLOPURINOL
     Indication: Congenital cystic kidney disease
  11. TOLVAPTAN [Concomitant]
     Active Substance: TOLVAPTAN
     Indication: Congenital cystic kidney disease
  12. VENLAFAXINE HYDROCHLORIDE [Concomitant]
     Active Substance: VENLAFAXINE HYDROCHLORIDE
     Indication: Congenital cystic kidney disease

REACTIONS (3)
  - Angioedema [Fatal]
  - Drug ineffective [Unknown]
  - Death [Fatal]
